FAERS Safety Report 7430233-1 (Version None)
Quarter: 2011Q2

REPORT INFORMATION
  Report Type: 
  Country: None (occurrence: None)
  Receive Date: 20110421
  Receipt Date: 20100729
  Transmission Date: 20111010
  Serious: No
  Sender: FDA-Public Use
  Company Number: US-ASTRAZENECA-2010SE35489

PATIENT
  Sex: Female
  Weight: 68 kg

DRUGS (2)
  1. METOPROLOL SUCCINATE [Suspect]
     Indication: MYOCARDIAL INFARCTION
     Route: 048
  2. METOPROLOL SUCCINATE [Suspect]
     Indication: MIGRAINE
     Route: 048

REACTIONS (3)
  - ABNORMAL DREAMS [None]
  - NAUSEA [None]
  - INSOMNIA [None]
